FAERS Safety Report 24933456 (Version 2)
Quarter: 2025Q1

REPORT INFORMATION
  Report Type: Spontaneous
  Country: CZ (occurrence: CZ)
  Receive Date: 20250206
  Receipt Date: 20250306
  Transmission Date: 20250408
  Serious: Yes (Congenital Anomaly, Other)
  Sender: Haleon PLC
  Company Number: CZ-HALEON-CZCH2023EME038885

PATIENT

DRUGS (2)
  1. ACETAMINOPHEN [Suspect]
     Active Substance: ACETAMINOPHEN
     Indication: Migraine
     Route: 064
  2. NIMESULIDE [Suspect]
     Active Substance: NIMESULIDE
     Indication: Migraine
     Route: 064

REACTIONS (9)
  - Tricuspid valve incompetence [Unknown]
  - Neonatal behavioural syndrome [Unknown]
  - Premature baby [Unknown]
  - Foetal exposure during pregnancy [Unknown]
  - Ductus arteriosus premature closure [Unknown]
  - Ventricular hypertrophy [Unknown]
  - Cardiac hypertrophy [Unknown]
  - Pulmonary hypertension [Unknown]
  - Hypoxia [Unknown]
